FAERS Safety Report 4614885-7 (Version None)
Quarter: 2005Q1

REPORT INFORMATION
  Report Type: 
  Country: None (occurrence: None)
  Receive Date: 20050322
  Receipt Date: 20050303
  Transmission Date: 20050727
  Serious: Yes (Other)
  Sender: FDA-Public Use
  Company Number: PHNR2005AU00606

PATIENT

DRUGS (1)
  1. GLEEVEC [Suspect]
     Indication: LEUKAEMIA
     Route: 048

REACTIONS (2)
  - POLYPECTOMY [None]
  - RECTAL POLYP [None]
